FAERS Safety Report 4546424-3 (Version None)
Quarter: 2005Q1

REPORT INFORMATION
  Report Type: 
  Country: None (occurrence: None)
  Receive Date: 20050103
  Receipt Date: 20041213
  Transmission Date: 20050727
  Serious: Yes (Death, Hospitalization, Other)
  Sender: FDA-Public Use
  Company Number: FR_041205422

PATIENT
  Age: 92 Year
  Sex: Male

DRUGS (2)
  1. ZYPREXA [Suspect]
     Indication: DEMENTIA
     Dosage: 15 MG DAY
     Dates: start: 20040301, end: 20040510
  2. PRAZEPAM [Concomitant]

REACTIONS (12)
  - APHAGIA [None]
  - BLOOD UREA INCREASED [None]
  - COMA [None]
  - DECUBITUS ULCER [None]
  - DYSSTASIA [None]
  - GENERAL PHYSICAL HEALTH DETERIORATION [None]
  - PROSTATIC SPECIFIC ANTIGEN INCREASED [None]
  - PYREXIA [None]
  - REGRESSIVE BEHAVIOUR [None]
  - STAPHYLOCOCCAL INFECTION [None]
  - TRANSAMINASES INCREASED [None]
  - WHITE BLOOD CELL COUNT INCREASED [None]
